FAERS Safety Report 4292191-0 (Version None)
Quarter: 2004Q1

REPORT INFORMATION
  Report Type: 
  Country: None (occurrence: None)
  Receive Date: 20040126
  Receipt Date: 20031029
  Transmission Date: 20041129
  Serious: No
  Sender: FDA-Public Use
  Company Number: USA030845446

PATIENT
  Age: 81 Year
  Sex: Female

DRUGS (7)
  1. FORTEO [Suspect]
     Indication: BONE DENSITY DECREASED
     Dates: start: 20030822, end: 20031023
  2. FORTEO [Suspect]
     Indication: FRACTURE
     Dates: start: 20030822, end: 20031023
  3. FORTEO [Suspect]
     Indication: OSTEOPOROSIS
     Dates: start: 20030822, end: 20031023
  4. ADVIL [Concomitant]
  5. THYROID TAB [Concomitant]
  6. CENTRUM [Concomitant]
  7. NAPROXEN [Concomitant]

REACTIONS (5)
  - ARTHRALGIA [None]
  - BACK DISORDER [None]
  - BREAST TENDERNESS [None]
  - CYSTITIS [None]
  - PAIN [None]
